FAERS Safety Report 22150118 (Version 3)
Quarter: 2023Q2

REPORT INFORMATION
  Report Type: Report from Study
  Country: RU (occurrence: RU)
  Receive Date: 20230329
  Receipt Date: 20230427
  Transmission Date: 20230722
  Serious: Yes (Hospitalization)
  Sender: FDA-Public Use
  Company Number: RU-002147023-NVSC2023RU067676

PATIENT
  Age: 2 Year
  Sex: Female

DRUGS (13)
  1. ZOLGENSMA [Suspect]
     Active Substance: ONASEMNOGENE ABEPARVOVEC-XIOI
     Indication: Spinal muscular atrophy
     Dosage: UNK, ONCE/SINGLE
     Route: 042
     Dates: start: 20221219, end: 20221219
  2. PREDNISOLONE [Concomitant]
     Active Substance: PREDNISOLONE
     Indication: Product used for unknown indication
     Dosage: 0.6 ML
     Route: 048
  3. PREDNISOLONE [Concomitant]
     Active Substance: PREDNISOLONE
     Dosage: 0.6 MG (GRADUALLY DECREASED FROM 1.7 MG)
     Route: 048
     Dates: start: 20221220
  4. OMEPRAZOLE [Concomitant]
     Active Substance: OMEPRAZOLE
     Indication: Product used for unknown indication
     Dosage: 10 MG, QD
     Route: 065
     Dates: start: 202301
  5. AMLODIPINE [Concomitant]
     Active Substance: AMLODIPINE BESYLATE
     Indication: Blood pressure measurement
     Dosage: 5 MG
     Route: 065
  6. EXHOL [Concomitant]
     Indication: Product used for unknown indication
     Dosage: 125 MG, QD
     Route: 065
     Dates: start: 20221230
  7. VITAMIN D3 [Concomitant]
     Active Substance: CHOLECALCIFEROL
     Indication: Product used for unknown indication
     Dosage: 2 DRP
     Route: 065
  8. VITAMIN D3 [Concomitant]
     Active Substance: CHOLECALCIFEROL
     Dosage: 5 DRP
     Route: 065
  9. BISOPROLOL [Concomitant]
     Active Substance: BISOPROLOL
     Indication: Blood pressure measurement
     Dosage: 5 MG, QD (2 TABLETS)
     Route: 065
     Dates: start: 202302
  10. SPIRONOLACTONE [Concomitant]
     Active Substance: SPIRONOLACTONE
     Indication: Product used for unknown indication
     Dosage: 5 MG (REPORTER NOT CERTAIN)
     Route: 065
  11. SPIRONOLACTONE [Concomitant]
     Active Substance: SPIRONOLACTONE
     Dosage: 25 MG (DECREASED FROM 50 MG)
     Route: 065
     Dates: start: 20230211
  12. ENALAPRIL [Concomitant]
     Active Substance: ENALAPRIL
     Indication: Product used for unknown indication
     Dosage: 5 MG, QD
     Route: 065
     Dates: start: 20230330
  13. PYRIDOXINE HYDROCHLORIDE [Concomitant]
     Active Substance: PYRIDOXINE HYDROCHLORIDE
     Indication: Product used for unknown indication
     Dosage: 10 MG, QD
     Route: 065
     Dates: start: 20230417

REACTIONS (7)
  - Atypical haemolytic uraemic syndrome [Unknown]
  - Renal failure [Recovering/Resolving]
  - Pulmonary oedema [Recovered/Resolved]
  - Thrombosis [Recovered/Resolved]
  - Blood pressure increased [Recovering/Resolving]
  - COVID-19 [Recovered/Resolved]
  - Pyrexia [Recovered/Resolved]

NARRATIVE: CASE EVENT DATE: 20221225
